FAERS Safety Report 5799264-1 (Version None)
Quarter: 2008Q3

REPORT INFORMATION
  Report Type: 
  Country: None (occurrence: None)
  Receive Date: 20080702
  Receipt Date: 20080620
  Transmission Date: 20090109
  Serious: Yes (Other)
  Sender: FDA-Public Use
  Company Number: US-PFIZER INC-2008051601

PATIENT
  Sex: Female
  Weight: 60 kg

DRUGS (9)
  1. CHANTIX [Suspect]
     Indication: SMOKING CESSATION THERAPY
     Route: 048
  2. NEXIUM [Concomitant]
     Indication: GASTROOESOPHAGEAL REFLUX DISEASE
     Route: 048
     Dates: start: 20080514, end: 20080612
  3. PREDNISONE 50MG TAB [Concomitant]
     Indication: UPPER RESPIRATORY TRACT INFECTION
     Route: 048
     Dates: start: 20080514, end: 20080612
  4. DIAZEPAM [Concomitant]
  5. VALIUM [Concomitant]
  6. CALCIUM [Concomitant]
  7. SPIRIVA [Concomitant]
  8. IPRATROPIUM BROMIDE [Concomitant]
  9. ALBUTEROL [Concomitant]

REACTIONS (3)
  - GASTROOESOPHAGEAL REFLUX DISEASE [None]
  - MUSCLE SPASMS [None]
  - UPPER RESPIRATORY TRACT INFECTION [None]
